FAERS Safety Report 9708930 (Version 3)
Quarter: 2014Q1

REPORT INFORMATION
  Report Type: Spontaneous
  Country: US (occurrence: US)
  Receive Date: 20131125
  Receipt Date: 20140108
  Transmission Date: 20141002
  Serious: No
  Sender: FDA-Public Use
  Company Number: US-009507513-1311USA006433

PATIENT
  Age: 28 Year
  Sex: Female

DRUGS (3)
  1. NEXPLANON [Suspect]
     Indication: CONTRACEPTION
     Dosage: UNK
     Route: 059
     Dates: start: 20130917, end: 20131126
  2. NEXPLANON [Suspect]
     Dosage: UNK
     Route: 059
     Dates: start: 20131126
  3. IMPLANON [Concomitant]
     Dosage: UNK
     Route: 059
     Dates: end: 20130917

REACTIONS (3)
  - Device dislocation [Recovered/Resolved]
  - Pain in extremity [Unknown]
  - Implant site scar [Unknown]
